FAERS Safety Report 20755191 (Version 1)
Quarter: 2022Q2

REPORT INFORMATION
  Report Type: Spontaneous
  Country: CA (occurrence: CA)
  Receive Date: 20220427
  Receipt Date: 20220427
  Transmission Date: 20220721
  Serious: Yes (Hospitalization)
  Sender: FDA-Public Use
  Company Number: CA-TEVA-2022-CA-2029634

PATIENT
  Age: 30 Year
  Sex: Male

DRUGS (1)
  1. IBUPROFEN [Suspect]
     Active Substance: IBUPROFEN
     Route: 065

REACTIONS (9)
  - Abdominal pain upper [Unknown]
  - Anaemia [Unknown]
  - Duodenal perforation [Unknown]
  - Early satiety [Unknown]
  - Helicobacter test [Unknown]
  - Melaena [Unknown]
  - Nausea [Unknown]
  - Haemoglobin decreased [Unknown]
  - Overdose [Unknown]
